FAERS Safety Report 6088521-X (Version None)
Quarter: 2009Q1

REPORT INFORMATION
  Report Type: 
  Country: None (occurrence: None)
  Receive Date: 20090224
  Receipt Date: 20090215
  Transmission Date: 20090719
  Serious: No
  Sender: FDA-Public Use
  Company Number: US-BAYER-200913517NA

PATIENT
  Age: 74 Year
  Sex: Female

DRUGS (1)
  1. CIPRO XR [Suspect]
     Indication: INFECTION
     Dates: start: 20090205, end: 20090213

REACTIONS (1)
  - THROAT TIGHTNESS [None]
